FAERS Safety Report 5187500-4 (Version None)
Quarter: 2006Q4

REPORT INFORMATION
  Report Type: 
  Country: None (occurrence: None)
  Receive Date: 20061220
  Receipt Date: 20060322
  Transmission Date: 20070319
  Serious: No
  Sender: FDA-Public Use
  Company Number: US-AMGEN-US173474

PATIENT
  Sex: Male

DRUGS (1)
  1. ENBREL [Suspect]
     Indication: PSORIATIC ARTHROPATHY
     Route: 058
     Dates: start: 20030530

REACTIONS (5)
  - DIARRHOEA [None]
  - INJECTION SITE BRUISING [None]
  - INJECTION SITE PARAESTHESIA [None]
  - STOMACH DISCOMFORT [None]
  - WEIGHT DECREASED [None]
